FAERS Safety Report 6233903-6 (Version None)
Quarter: 2009Q2

REPORT INFORMATION
  Report Type: 
  Country: None (occurrence: None)
  Receive Date: 20090616
  Receipt Date: 20090616
  Transmission Date: 20091009
  Serious: Yes (Hospitalization)
  Sender: FDA-Public Use
  Company Number: None

PATIENT
  Age: 55 Year
  Sex: Male
  Weight: 88.5 kg

DRUGS (8)
  1. LISINOPRIL [Suspect]
     Indication: HYPERTENSION
     Dosage: 10 MG BID PO
     Route: 048
     Dates: start: 20080205, end: 20090330
  2. AMIODARONE [Concomitant]
  3. BUMEX [Concomitant]
  4. COREG [Concomitant]
  5. POTASSIUM CHLORIDE [Concomitant]
  6. ISOROBIDE MONONITRATE [Concomitant]
  7. SYNTHROID [Concomitant]
  8. LEXIPRO [Concomitant]

REACTIONS (1)
  - LIP SWELLING [None]
